FAERS Safety Report 6239052-5 (Version None)
Quarter: 2009Q2

REPORT INFORMATION
  Report Type: 
  Country: None (occurrence: None)
  Receive Date: 20090617
  Receipt Date: 20090617
  Transmission Date: 20091009
  Serious: Yes (Hospitalization)
  Sender: FDA-Public Use
  Company Number: None

PATIENT
  Age: 60 Year
  Sex: Female
  Weight: 88.905 kg

DRUGS (1)
  1. METOPROLOL TARTRATE [Suspect]
     Indication: HYPERTENSION

REACTIONS (3)
  - DRUG DOSE OMISSION [None]
  - PRODUCT SUBSTITUTION ISSUE [None]
  - TACHYCARDIA [None]
